FAERS Safety Report 20590338 (Version 1)
Quarter: 2022Q1

REPORT INFORMATION
  Report Type: Spontaneous
  Country: NL (occurrence: NL)
  Receive Date: 20220314
  Receipt Date: 20220314
  Transmission Date: 20220423
  Serious: Yes (Other)
  Sender: FDA-Public Use
  Company Number: None

PATIENT
  Sex: Male
  Weight: 82 kg

DRUGS (7)
  1. AMLODIPINE [Suspect]
     Active Substance: AMLODIPINE BESYLATE
     Indication: Angina pectoris
     Dosage: 10 MILLIGRAM, QD (1 TIME DAILY)
     Dates: start: 202109, end: 20220210
  2. CANDESARTAN [Concomitant]
     Active Substance: CANDESARTAN
     Dosage: 32 MILLIGRAM (TABLET)
  3. ATORVASTATIN [Concomitant]
     Active Substance: ATORVASTATIN
     Dosage: 20 MILLIGRAM
  4. ISOSORBIDEDINITRAAT [Concomitant]
     Dosage: 5 MILLIGRAM(~SUBLINGUAAL TABLET 5MG )
     Route: 060
  5. KETOCONAZOLE;TRIAMCINOLONE [Concomitant]
     Dosage: UNK MILLIGRAM PER GRAM (CREME, 20/1 MG/G (MILLIGRAM PER GRAM))
  6. ASPIRIN [Concomitant]
     Active Substance: ASPIRIN
     Dosage: 80 MILLIGRAM
  7. ISOSORBIDEMONONITRAAT [Concomitant]
     Dosage: 25 MILLIGRAM(CAPSULE MET GEREGULEERDE AFGIFTE)

REACTIONS (2)
  - Erectile dysfunction [Unknown]
  - Libido decreased [Unknown]
